FAERS Safety Report 8389405-4 (Version None)
Quarter: 2012Q2

REPORT INFORMATION
  Report Type: 
  Country: None (occurrence: None)
  Receive Date: 20120528
  Receipt Date: 20120516
  Transmission Date: 20120825
  Serious: Yes (Other)
  Sender: FDA-Public Use
  Company Number: US-SHIRE-ALL1-2012-02548

PATIENT
  Sex: Female
  Weight: 70.295 kg

DRUGS (8)
  1. KLONOPIN [Concomitant]
     Indication: ANXIETY
     Dosage: 1 MG, 1X/DAY:QD
     Route: 048
     Dates: start: 20110101
  2. VYVANSE [Suspect]
     Indication: OBSESSIVE-COMPULSIVE DISORDER
  3. XANAX [Concomitant]
     Dosage: UNK, UNKNOWN
     Route: 065
     Dates: start: 20120514
  4. VYVANSE [Suspect]
     Indication: ATTENTION DEFICIT/HYPERACTIVITY DISORDER
     Dosage: 70 MG, 1X/DAY:QD
     Route: 048
     Dates: start: 20110101, end: 20120509
  5. XANAX [Concomitant]
     Indication: ANXIETY
     Dosage: 1 MG, 3X/DAY:TID
     Route: 048
     Dates: start: 20110101
  6. LAMICTAL [Concomitant]
     Indication: BIPOLAR DISORDER
     Dosage: 200 MG, 1X/DAY:QD
     Route: 048
     Dates: start: 20110101
  7. ZOLOFT [Concomitant]
     Indication: DEPRESSION
     Dosage: 200 MG, 1X/DAY:QD
     Route: 048
     Dates: start: 20110101
  8. ABILIFY [Concomitant]
     Indication: DEPRESSION
     Dosage: 10 MG, 1X/DAY:QD
     Route: 048
     Dates: start: 20110101

REACTIONS (8)
  - HEADACHE [None]
  - INSOMNIA [None]
  - ANXIETY [None]
  - HYPERHIDROSIS [None]
  - DEPRESSION [None]
  - MALAISE [None]
  - PAIN [None]
  - ASTHENIA [None]
